FAERS Safety Report 18533403 (Version 16)
Quarter: 2024Q1

REPORT INFORMATION
  Report Type: Other
  Country: DE (occurrence: None)
  Receive Date: 20201123
  Receipt Date: 20240321
  Transmission Date: 20240410
  Serious: Yes (Other)
  Sender: FDA-Public Use
  Company Number: DE-ROCHE-2211602

PATIENT
  Age: 49 Year
  Sex: Female
  Weight: 56 kg

DRUGS (8)
  1. OCREVUS [Suspect]
     Active Substance: OCRELIZUMAB
     Indication: Relapsing-remitting multiple sclerosis
     Dosage: SUBSEQUENT DOSE ON 09/NOV/2018
     Route: 042
     Dates: start: 20181026, end: 20181109
  2. OCREVUS [Suspect]
     Active Substance: OCRELIZUMAB
     Dosage: SUBSEQUENT DOSES OF OCRELZUMAB: 14/NOV/2019, 14/MAY/2020, 19/NOV/2020, 18/NOV/2021, 01/AUG/2022, 05/
     Route: 042
     Dates: start: 20190510
  3. LEVOTHYROXINE SODIUM [Suspect]
     Active Substance: LEVOTHYROXINE SODIUM
     Indication: Product used for unknown indication
     Dosage: ALTERNATING 50 AND 75 UG, 25 UG
     Route: 065
  4. LEVOTHYROXINE SODIUM [Suspect]
     Active Substance: LEVOTHYROXINE SODIUM
     Dosage: ALTERNATING
     Route: 065
  5. LEVOTHYROXINE SODIUM [Suspect]
     Active Substance: LEVOTHYROXINE SODIUM
     Route: 065
  6. COMIRNATY (TOZINAMERAN) [Suspect]
     Active Substance: TOZINAMERAN
     Indication: COVID-19 immunisation
     Dosage: FIRST DOSE DATE NOT KNOWN?SECOND DOSE ON 11/JUN/2021?THIRD DOSE ON 07/SEP/2021
     Route: 065
  7. CORTISONE [Suspect]
     Active Substance: CORTISONE
     Indication: Product used for unknown indication
     Route: 065
  8. BOTOX [Concomitant]
     Active Substance: ONABOTULINUMTOXINA
     Indication: Muscle spasticity
     Dosage: REGULARLY INJECTIONS INTO THE FEET

REACTIONS (19)
  - Vaginal infection [Recovered/Resolved]
  - Vaginal infection [Recovered/Resolved]
  - Fatigue [Recovered/Resolved]
  - Night sweats [Recovered/Resolved]
  - Erythema [Recovered/Resolved]
  - Hyperthyroidism [Not Recovered/Not Resolved]
  - Hypothyroidism [Unknown]
  - Mental disorder [Recovered/Resolved]
  - Headache [Recovered/Resolved]
  - Cystitis noninfective [Recovered/Resolved]
  - Oral fungal infection [Recovered/Resolved]
  - Inflammation [Recovered/Resolved]
  - Pulpitis dental [Recovered/Resolved]
  - B-lymphocyte count decreased [Recovered/Resolved]
  - SARS-CoV-2 antibody test negative [Not Recovered/Not Resolved]
  - Hypertonic bladder [Recovered/Resolved]
  - Incontinence [Not Recovered/Not Resolved]
  - Cataract [Recovered/Resolved]
  - Flushing [Recovered/Resolved]

NARRATIVE: CASE EVENT DATE: 20181026
